FAERS Safety Report 7416002-7 (Version None)
Quarter: 2011Q2

REPORT INFORMATION
  Report Type: 
  Country: None (occurrence: None)
  Receive Date: 20110414
  Receipt Date: 20110408
  Transmission Date: 20111010
  Serious: Yes (Other)
  Sender: FDA-Public Use
  Company Number: US-ROXANE LABORATORIES, INC.-2011-RO-00486RO

PATIENT

DRUGS (8)
  1. DULOXETINE [Suspect]
     Indication: PAIN
  2. PREGABALIN [Suspect]
     Indication: PAIN
  3. OXYCODONE [Suspect]
     Indication: PAIN
  4. TRAZODONE [Suspect]
     Indication: PAIN
  5. MORPHINE [Suspect]
     Indication: PAIN
  6. DOXEPIN [Suspect]
     Indication: PAIN
  7. GABAPENTIN [Suspect]
     Indication: PAIN
  8. HYDROCODONE [Suspect]
     Indication: PAIN

REACTIONS (4)
  - DRUG TOLERANCE [None]
  - DEPRESSION [None]
  - CONSTIPATION [None]
  - NAUSEA [None]
